FAERS Safety Report 11114763 (Version 1)
Quarter: 2015Q2

REPORT INFORMATION
  Report Type: Other
  Country: AU (occurrence: AU)
  Receive Date: 20150515
  Receipt Date: 20150515
  Transmission Date: 20150821
  Serious: Yes (Hospitalization)
  Sender: FDA-Public Use
  Company Number: AU-LUPIN PHARMACEUTICALS INC.-2015-01289

PATIENT
  Age: 43 Year
  Sex: Male

DRUGS (2)
  1. DIAZEPAM. [Suspect]
     Active Substance: DIAZEPAM
     Indication: PRODUCT USED FOR UNKNOWN INDICATION
     Dosage: 40MG
     Route: 065
  2. METFORMIN [Suspect]
     Active Substance: METFORMIN HYDROCHLORIDE
     Indication: PRODUCT USED FOR UNKNOWN INDICATION
     Dosage: 50G
     Route: 065

REACTIONS (5)
  - Hyperkalaemia [Unknown]
  - Lactic acidosis [Unknown]
  - Intentional overdose [Unknown]
  - Coma scale abnormal [Unknown]
  - Renal impairment [Unknown]
